FAERS Safety Report 21028709 (Version 2)
Quarter: 2022Q3

REPORT INFORMATION
  Report Type: Spontaneous
  Country: JP (occurrence: JP)
  Receive Date: 20220630
  Receipt Date: 20220913
  Transmission Date: 20221026
  Serious: Yes (Other)
  Sender: FDA-Public Use
  Company Number: JP-MTPC-MTPC2022-0016652

PATIENT
  Age: 14 Month
  Sex: Female

DRUGS (3)
  1. REMICADE [Suspect]
     Active Substance: INFLIXIMAB
     Indication: Kawasaki^s disease
     Route: 041
  2. CYCLOSPORINE [Suspect]
     Active Substance: CYCLOSPORINE
  3. ULINASTATIN [Concomitant]
     Active Substance: ULINASTATIN

REACTIONS (1)
  - Aspergillus infection [Unknown]
